FAERS Safety Report 18434653 (Version 1)
Quarter: 2020Q4

REPORT INFORMATION
  Report Type: Spontaneous
  Country: US (occurrence: US)
  Receive Date: 20201027
  Receipt Date: 20201027
  Transmission Date: 20210114
  Serious: Yes (Hospitalization)
  Sender: FDA-Public Use
  Company Number: None

PATIENT
  Sex: Male

DRUGS (1)
  1. METHYLPREDNISOLONE. [Suspect]
     Active Substance: METHYLPREDNISOLONE
     Indication: PROSTATE CANCER
     Dosage: ?          OTHER FREQUENCY:1TAB D W/BREAKFAST;?
     Route: 048
     Dates: start: 20200708

REACTIONS (1)
  - Fall [None]
